FAERS Safety Report 9459933 (Version 1)
Quarter: 2013Q3

REPORT INFORMATION
  Report Type: Report from Study
  Country: JP (occurrence: JP)
  Receive Date: 20130815
  Receipt Date: 20130815
  Transmission Date: 20140515
  Serious: Yes (Hospitalization)
  Sender: FDA-Public Use
  Company Number: JP-VERTEX PHARMACEUTICALS INC-AE-2012-010828

PATIENT
  Age: 62 Year
  Sex: Male

DRUGS (12)
  1. PEGINTERFERON ALFA-2B [Suspect]
     Indication: CHRONIC HEPATITIS C
     Dosage: 1.5 ?G/KG, QW
     Route: 058
     Dates: start: 20120516, end: 20120522
  2. PEGINTERFERON ALFA-2B [Suspect]
     Dosage: 0.8 ?G/KG, QW
     Route: 058
     Dates: start: 20120523, end: 20121031
  3. RIBAVIRIN [Suspect]
     Indication: CHRONIC HEPATITIS C
     Dosage: 800 MG, QD
     Route: 048
     Dates: start: 20120516, end: 20120528
  4. RIBAVIRIN [Suspect]
     Dosage: 400 MG, QD
     Route: 048
     Dates: start: 20120529, end: 20121030
  5. URSO [Concomitant]
     Dosage: 600 MG, QD
     Route: 048
     Dates: end: 20120606
  6. BLOPRESS [Concomitant]
     Dosage: 8 MG, QD
     Route: 048
  7. AMLODIN [Concomitant]
     Dosage: 5 MG, QD
     Route: 048
  8. BAYASPIRIN [Concomitant]
     Dosage: 100 MG, QD
     Route: 048
  9. ACINON [Concomitant]
     Dosage: 150 MG, QD
     Route: 048
  10. SOLULACT [Concomitant]
     Dosage: 2000 ML, QD
     Route: 041
     Dates: start: 20120518, end: 20120522
  11. VX-950 (TELAPREVIR) [Suspect]
     Indication: HEPATITIS C
     Dosage: 2250 MG, QD
     Route: 048
     Dates: start: 20120516, end: 20130523
  12. VX-950 (TELAPREVIR) [Suspect]
     Dosage: 1500 MG, QD
     Route: 048
     Dates: start: 20120524, end: 20120807

REACTIONS (2)
  - Renal disorder [Recovered/Resolved]
  - Hyperuricaemia [Recovered/Resolved]
